FAERS Safety Report 8107003-4 (Version None)
Quarter: 2012Q1

REPORT INFORMATION
  Report Type: 
  Country: None (occurrence: None)
  Receive Date: 20120202
  Receipt Date: 20120202
  Transmission Date: 20120608
  Serious: Yes (Other)
  Sender: FDA-Public Use
  Company Number: None

PATIENT
  Age: 44 Year
  Sex: Female
  Weight: 65.77 kg

DRUGS (1)
  1. PROLIXIN DECANOATE [Suspect]
     Indication: PANIC ATTACK
     Dosage: UNKNOWN
     Route: 030
     Dates: start: 20110601, end: 20110601

REACTIONS (5)
  - DEFORMITY [None]
  - DEPRESSION [None]
  - SKIN DISORDER [None]
  - SELF ESTEEM DECREASED [None]
  - MENTAL DISORDER [None]
